FAERS Safety Report 20813634 (Version 2)
Quarter: 2022Q3

REPORT INFORMATION
  Report Type: Other
  Country: DE (occurrence: None)
  Receive Date: 20220511
  Receipt Date: 20220729
  Transmission Date: 20221027
  Serious: Yes (Other)
  Sender: FDA-Public Use
  Company Number: DE-ROCHE-2737956

PATIENT
  Age: 30 Year
  Sex: Female

DRUGS (1)
  1. OCREVUS [Suspect]
     Active Substance: OCRELIZUMAB
     Indication: Relapsing-remitting multiple sclerosis
     Dosage: THEN 600 MG, ONCE IN 176 DAYS
     Route: 042
     Dates: start: 20200901

REACTIONS (14)
  - Abnormal uterine bleeding [Recovered/Resolved]
  - Fatigue [Recovering/Resolving]
  - Uhthoff^s phenomenon [Recovered/Resolved]
  - Visual impairment [Recovering/Resolving]
  - Paraesthesia [Recovered/Resolved]
  - Disturbance in attention [Recovering/Resolving]
  - Balance disorder [Recovering/Resolving]
  - Vaginal infection [Recovered/Resolved]
  - Galactorrhoea [Not Recovered/Not Resolved]
  - Oropharyngeal pain [Not Recovered/Not Resolved]
  - Depressed mood [Recovering/Resolving]
  - Nasopharyngitis [Recovered/Resolved]
  - COVID-19 [Recovered/Resolved]
  - Cough [Recovered/Resolved]

NARRATIVE: CASE EVENT DATE: 20201101
